FAERS Safety Report 7996071-6 (Version None)
Quarter: 2011Q4

REPORT INFORMATION
  Report Type: 
  Country: None (occurrence: None)
  Receive Date: 20111220
  Receipt Date: 20111209
  Transmission Date: 20120403
  Serious: Yes (Death, Other)
  Sender: FDA-Public Use
  Company Number: PHHY2011JP107285

PATIENT
  Age: 16 Year
  Sex: Male
  Weight: 40 kg

DRUGS (4)
  1. NEORAL [Suspect]
     Indication: LIVER TRANSPLANT
     Dosage: 200 MG, UNK
     Route: 048
     Dates: start: 20111206
  2. CORTICOSTEROID NOS [Concomitant]
     Route: 048
  3. MYCOPHENOLATE MOFETIL (CELLCEPT) [Concomitant]
     Route: 048
  4. TACROLIMUS [Concomitant]
     Dosage: 3.5 MG, UNK
     Route: 048
     Dates: start: 20111205

REACTIONS (5)
  - BLOOD PRESSURE DECREASED [None]
  - DISSEMINATED INTRAVASCULAR COAGULATION [None]
  - THROMBOTIC MICROANGIOPATHY [None]
  - PLATELET COUNT DECREASED [None]
  - ARRHYTHMIA [None]
